FAERS Safety Report 8259582-4 (Version None)
Quarter: 2012Q1

REPORT INFORMATION
  Report Type: 
  Country: None (occurrence: None)
  Receive Date: 20120327
  Receipt Date: 20081010
  Transmission Date: 20120608
  Serious: Yes (Other)
  Sender: FDA-Public Use
  Company Number: PHEH2008US07679

PATIENT
  Age: 73 Year
  Sex: Female
  Weight: 64.9 kg

DRUGS (12)
  1. ZOCOR [Concomitant]
  2. GLUCOTROL [Concomitant]
  3. ALBUTEROL [Concomitant]
  4. REGLAN /USA/ (METOCLOPRAMIDE HYDROCHLORIDE) [Concomitant]
  5. GLEEVEC [Suspect]
     Indication: BONE MARROW DISORDER
     Dosage: 400 MG, QD, ORAL; 400 MG, QD;  300 MG, QD
     Route: 048
     Dates: start: 20080412
  6. GLEEVEC [Suspect]
     Indication: CHRONIC MYELOID LEUKAEMIA
     Dosage: 400 MG, QD, ORAL; 400 MG, QD;  300 MG, QD
     Route: 048
     Dates: start: 20080412
  7. GLEEVEC [Suspect]
     Indication: BONE MARROW DISORDER
     Dosage: 400 MG, QD, ORAL; 400 MG, QD;  300 MG, QD
     Route: 048
     Dates: end: 20060626
  8. GLEEVEC [Suspect]
     Indication: CHRONIC MYELOID LEUKAEMIA
     Dosage: 400 MG, QD, ORAL; 400 MG, QD;  300 MG, QD
     Route: 048
     Dates: end: 20060626
  9. PROPRANOLOL [Concomitant]
  10. LANOXIN [Concomitant]
  11. ASPIRIN [Concomitant]
  12. CLARITIN [Concomitant]

REACTIONS (12)
  - RASH [None]
  - ADENOIDAL DISORDER [None]
  - COUGH [None]
  - PHARYNGEAL OEDEMA [None]
  - SWOLLEN TONGUE [None]
  - FLUID RETENTION [None]
  - TACHYCARDIA [None]
  - HEART RATE ABNORMAL [None]
  - CHEST DISCOMFORT [None]
  - MALAISE [None]
  - ASTHENIA [None]
  - SWELLING FACE [None]
